FAERS Safety Report 20546550 (Version 2)
Quarter: 2022Q1

REPORT INFORMATION
  Report Type: Spontaneous
  Country: US (occurrence: US)
  Receive Date: 20220303
  Receipt Date: 20220322
  Transmission Date: 20220423
  Serious: Yes (Other)
  Sender: FDA-Public Use
  Company Number: US-009507513-2203USA000729

PATIENT
  Age: 56 Year
  Sex: Male

DRUGS (4)
  1. KEYTRUDA [Suspect]
     Active Substance: PEMBROLIZUMAB
     Indication: Malignant neoplasm progression
     Dosage: 200 MILLIGRAM, EVERY 3 WEEKS
     Route: 042
     Dates: start: 20220214
  2. KEYTRUDA [Suspect]
     Active Substance: PEMBROLIZUMAB
     Indication: Glioblastoma
  3. ZEJULA [Suspect]
     Active Substance: NIRAPARIB
     Indication: Glioblastoma
     Dosage: UNK
     Route: 042
     Dates: start: 20220214
  4. ZEJULA [Suspect]
     Active Substance: NIRAPARIB
     Indication: Malignant neoplasm progression

REACTIONS (10)
  - Seizure [Unknown]
  - Brain oedema [Unknown]
  - Poor quality sleep [Unknown]
  - Disturbance in attention [Unknown]
  - Hepatic enzyme increased [Unknown]
  - Fatigue [Unknown]
  - Myalgia [Unknown]
  - Product use in unapproved indication [Unknown]
  - Inappropriate schedule of product administration [Unknown]
  - Circumstance or information capable of leading to medication error [Unknown]

NARRATIVE: CASE EVENT DATE: 20220101
